FAERS Safety Report 9856499 (Version 3)
Quarter: 2014Q1

REPORT INFORMATION
  Report Type: Spontaneous
  Country: GB (occurrence: GB)
  Receive Date: 20140130
  Receipt Date: 20140212
  Transmission Date: 20141002
  Serious: Yes (Death, Hospitalization, Other)
  Sender: FDA-Public Use
  Company Number: GB-OTSUKA-EU-2013-10316

PATIENT
  Age: 63 Year
  Sex: Male

DRUGS (6)
  1. SAMSCA [Suspect]
     Indication: INAPPROPRIATE ANTIDIURETIC HORMONE SECRETION
     Dosage: 15 MG MILLIGRAM(S), SINGLE
     Route: 048
     Dates: start: 20131130
  2. DEMECLOCYCLINE [Concomitant]
     Indication: INAPPROPRIATE ANTIDIURETIC HORMONE SECRETION
     Dosage: UNK UNK, UNKNOWN
     Route: 065
     Dates: start: 20131128, end: 20131130
  3. TAZOCIN [Concomitant]
     Indication: NEUTROPENIC SEPSIS
     Dosage: UNK UNK, UNKNOWN
     Route: 065
     Dates: start: 20131127
  4. ACYCLOVIR [Concomitant]
     Indication: NEUTROPENIC SEPSIS
     Dosage: UNK UNK, UNKNOWN
     Route: 048
     Dates: start: 20131127
  5. POSACONAZOLE [Concomitant]
     Indication: NEUTROPENIC SEPSIS
     Dosage: UNK UNK, UNKNOWN
     Route: 048
     Dates: start: 20131127
  6. FILGRASTIM [Concomitant]
     Indication: NEUTROPENIA
     Dosage: UNK UNK, UNKNOWN
     Route: 065
     Dates: start: 20131128

REACTIONS (3)
  - Death [Fatal]
  - Rapid correction of hyponatraemia [Unknown]
  - Gastrointestinal haemorrhage [Unknown]
